FAERS Safety Report 10014854 (Version 1)
Quarter: 2014Q1

REPORT INFORMATION
  Report Type: Spontaneous
  Country: US (occurrence: US)
  Receive Date: 20140317
  Receipt Date: 20140317
  Transmission Date: 20141002
  Serious: Yes (Other)
  Sender: FDA-Public Use
  Company Number: US-BAYER-2014-037163

PATIENT
  Age: 20 Year
  Sex: Female
  Weight: 48 kg

DRUGS (2)
  1. ALKA-SELTZER PLUS SEVERE ALLERGY SINUS CONGESTION + HEADACHE LG [Suspect]
     Indication: NASAL CONGESTION
     Dosage: 1 DF, ONCE
     Route: 048
     Dates: start: 201402, end: 201402
  2. FISH OIL [Concomitant]

REACTIONS (10)
  - Depressed level of consciousness [Recovered/Resolved]
  - Sedation [Recovered/Resolved]
  - Balance disorder [Recovered/Resolved]
  - Coordination abnormal [Recovered/Resolved]
  - Drug ineffective [None]
  - Dizziness [Recovered/Resolved]
  - Nausea [Recovered/Resolved]
  - Asthenia [Recovered/Resolved]
  - Feeling drunk [Recovered/Resolved]
  - Disturbance in attention [Recovered/Resolved]
